FAERS Safety Report 12447596 (Version 1)
Quarter: 2016Q2

REPORT INFORMATION
  Report Type: Spontaneous
  Country: US (occurrence: US)
  Receive Date: 20160608
  Receipt Date: 20160608
  Transmission Date: 20160815
  Serious: No
  Sender: FDA-Public Use
  Company Number: US-BAYER-2016-111302

PATIENT
  Age: 78 Year
  Sex: Female

DRUGS (1)
  1. ALEVE [Suspect]
     Active Substance: NAPROXEN SODIUM
     Dosage: 2 DF, BID (2 IN MORN AND 2 AT NIGHT)
     Route: 048

REACTIONS (2)
  - Product use issue [None]
  - Arthropathy [None]
